FAERS Safety Report 8325767-1 (Version None)
Quarter: 2012Q2

REPORT INFORMATION
  Report Type: 
  Country: None (occurrence: None)
  Receive Date: 20120501
  Receipt Date: 20120420
  Transmission Date: 20120825
  Serious: No
  Sender: FDA-Public Use
  Company Number: US-BIOGENIDEC-2011BI046408

PATIENT
  Age: 35 Year
  Sex: Female

DRUGS (1)
  1. TYSABRI [Suspect]
     Indication: MULTIPLE SCLEROSIS
     Route: 042
     Dates: start: 20111115

REACTIONS (7)
  - MALAISE [None]
  - ASTHENIA [None]
  - LIMB INJURY [None]
  - HYPOAESTHESIA [None]
  - NAUSEA [None]
  - HEADACHE [None]
  - MUSCLE SPASMS [None]
